FAERS Safety Report 8890901 (Version 3)
Quarter: 2012Q4

REPORT INFORMATION
  Report Type: 
  Country: US (occurrence: US)
  Receive Date: 20121107
  Receipt Date: 20121228
  Transmission Date: 20130627
  Serious: Yes (Life-Threatening, Disabling, Other)
  Sender: FDA-Public Use
  Company Number: US-CELGENEUS-163-21880-12110771

PATIENT
  Age: 71 Year
  Sex: Male
  Weight: 79.45 kg

DRUGS (2)
  1. REVLIMID [Suspect]
     Indication: MULTIPLE MYELOMA
     Dosage: 5 Milligram
     Route: 048
     Dates: start: 20110504, end: 20120828
  2. BORTEZOMIB [Concomitant]
     Indication: DRUG USE FOR UNKNOWN INDICATION
     Route: 065
     Dates: start: 20110504, end: 20120828

REACTIONS (1)
  - Plasma cell myeloma [Recovering/Resolving]
